FAERS Safety Report 8160646-4 (Version None)
Quarter: 2012Q1

REPORT INFORMATION
  Report Type: 
  Country: None (occurrence: None)
  Receive Date: 20120223
  Receipt Date: 20120216
  Transmission Date: 20120608
  Serious: Yes (Other)
  Sender: FDA-Public Use
  Company Number: US-ROCHE-781548

PATIENT
  Sex: Female
  Weight: 79.4 kg

DRUGS (16)
  1. SPIRIVA [Concomitant]
     Dates: start: 20100315
  2. NORTRIPTYLINE HCL [Concomitant]
     Dates: start: 20110914
  3. CALCIUM D 500 [Concomitant]
     Dates: start: 20090423
  4. POTASSIUM CHLORIDE [Concomitant]
     Dates: start: 20100315
  5. LASIX [Concomitant]
     Indication: LYMPHOEDEMA
     Dates: start: 20100315, end: 20100809
  6. NEUROMIN [Concomitant]
     Route: 048
     Dates: start: 20090423
  7. AROMASIN [Concomitant]
     Dates: start: 20060802, end: 20110517
  8. SELENIUM [Concomitant]
     Dates: start: 20110517
  9. VICODIN [Concomitant]
     Dates: start: 20100219, end: 20110914
  10. BONIVA [Suspect]
     Indication: OSTEOPENIA
     Dosage: DOSE: 150
     Route: 048
     Dates: start: 20100507, end: 20101213
  11. ACTONEL [Suspect]
     Indication: OSTEOPENIA
     Dosage: DOSE: 35
     Route: 048
     Dates: start: 20060310, end: 20080401
  12. ZOMETA [Suspect]
     Indication: OSTEOPENIA
     Route: 042
     Dates: start: 20090423, end: 20100315
  13. CELEBREX [Concomitant]
     Dates: start: 20101213
  14. ATENOLOL [Concomitant]
  15. FLAXSEED OIL [Concomitant]
     Dates: start: 20060305
  16. MILK THISTLE [Concomitant]
     Dates: start: 20060305

REACTIONS (6)
  - DYSPHAGIA [None]
  - BONE PAIN [None]
  - PAIN IN EXTREMITY [None]
  - ARTHRITIS [None]
  - EXOSTOSIS [None]
  - GAIT DISTURBANCE [None]
